FAERS Safety Report 6868462-8 (Version None)
Quarter: 2010Q3

REPORT INFORMATION
  Report Type: 
  Country: None (occurrence: None)
  Receive Date: 20100722
  Receipt Date: 20080618
  Transmission Date: 20110219
  Serious: No
  Sender: FDA-Public Use
  Company Number: US-PFIZER INC-2008045863

PATIENT
  Sex: Male
  Weight: 83.46 kg

DRUGS (4)
  1. CHANTIX [Suspect]
     Indication: SMOKING CESSATION THERAPY
     Dosage: EVERY DAY
     Dates: start: 20070101
  2. ALLEGRA [Concomitant]
  3. XOPENEX [Concomitant]
  4. MOMETASONE FUROATE [Concomitant]

REACTIONS (4)
  - ABDOMINAL DISTENSION [None]
  - FLATULENCE [None]
  - TONGUE DISCOLOURATION [None]
  - WEIGHT INCREASED [None]
